FAERS Safety Report 25092463 (Version 3)
Quarter: 2025Q4

REPORT INFORMATION
  Report Type: Spontaneous
  Country: CA (occurrence: CA)
  Receive Date: 20250319
  Receipt Date: 20251110
  Transmission Date: 20260118
  Serious: Yes (Other)
  Sender: CELLTRION
  Company Number: CA-PFIZER INC-202500051916

PATIENT

DRUGS (7)
  1. INFLIXIMAB [Suspect]
     Active Substance: INFLIXIMAB
     Indication: Colitis ulcerative
     Dosage: 400.0 MILLIGRAM
     Route: 042
  2. INFLIXIMAB [Suspect]
     Active Substance: INFLIXIMAB
     Dosage: UNK
     Route: 042
  3. INFLIXIMAB [Suspect]
     Active Substance: INFLIXIMAB
     Dosage: 400.0 MILLIGRAM
     Route: 065
  4. INFLECTRA [Suspect]
     Active Substance: INFLIXIMAB-DYYB
     Indication: Colitis ulcerative
     Dosage: 400 MG,W 0, 2, 6 WEEKS THEN EVERY 8 WEEKS - RELOAD
     Route: 042
     Dates: start: 20250206
  5. INFLECTRA [Suspect]
     Active Substance: INFLIXIMAB-DYYB
     Dosage: UNK,DOSE RECEIVED UNKNOWN , WEEK 6 , (INCOMPLETE),(W 0, 2, 6 WEEKS THEN EVERY 8 WEEKS - RELOAD)
     Route: 042
     Dates: start: 20250305
  6. INFLECTRA [Suspect]
     Active Substance: INFLIXIMAB-DYYB
     Dosage: 400 MG W 0, 2, 6 WEEKS THEN EVERY 8 WEEKS - RELOAD (BUT PT RECEIVED IT 11 WEEKS 5 DAYS AFTER LAST IN
     Dates: start: 20250429
  7. HYDROCORTISONE [Concomitant]
     Active Substance: HYDROCORTISONE
     Dosage: 1 DF,UNKNOWN

REACTIONS (4)
  - Joint swelling [Recovering/Resolving]
  - Rheumatoid arthritis [Recovering/Resolving]
  - Joint injury [Recovering/Resolving]
  - Overdose [Unknown]
